FAERS Safety Report 15035136 (Version 6)
Quarter: 2021Q1

REPORT INFORMATION
  Report Type: Spontaneous
  Country: US (occurrence: US)
  Receive Date: 20180620
  Receipt Date: 20210326
  Transmission Date: 20210419
  Serious: Yes (Hospitalization, Other)
  Sender: FDA-Public Use
  Company Number: US-PFIZER INC-2018248808

PATIENT
  Age: 53 Year
  Sex: Female
  Weight: 45.35 kg

DRUGS (9)
  1. ASPIRIN. [Concomitant]
     Active Substance: ASPIRIN
     Indication: CEREBROVASCULAR ACCIDENT
     Dosage: 81 MG, DAILY
  2. ASPIRIN. [Concomitant]
     Active Substance: ASPIRIN
     Dosage: UNK(81 MG TO REG. STGT. 325)
  3. LYRICA [Suspect]
     Active Substance: PREGABALIN
     Indication: NEUROPATHY PERIPHERAL
     Dosage: 100 TWICE DAILY
  4. METHOCARBAMOL. [Concomitant]
     Active Substance: METHOCARBAMOL
     Indication: MUSCLE SPASMS
     Dosage: 500 MG, AS NEEDED
  5. PROTONIX [Concomitant]
     Active Substance: PANTOPRAZOLE SODIUM
     Indication: ANXIETY
     Dosage: 40 MG, 1X/DAY
  6. FOLIC ACID. [Concomitant]
     Active Substance: FOLIC ACID
     Dosage: 1 MG, DAILY
  7. METHOCARBAMOL. [Concomitant]
     Active Substance: METHOCARBAMOL
     Indication: PAIN
  8. LYRICA [Suspect]
     Active Substance: PREGABALIN
     Indication: FIBROMYALGIA
     Dosage: 200 MG, 2X/DAY
  9. MELOXICAM. [Concomitant]
     Active Substance: MELOXICAM
     Indication: MUSCLE SPASMS
     Dosage: UNK, DAILY (AT NIGHT)

REACTIONS (33)
  - Stress [Unknown]
  - Loss of consciousness [Unknown]
  - Tongue disorder [Recovered/Resolved]
  - Heart rate increased [Unknown]
  - Feeling abnormal [Unknown]
  - Product complaint [Recovered/Resolved]
  - Mood swings [Recovered/Resolved]
  - Cerebrovascular accident [Unknown]
  - Disease recurrence [Unknown]
  - Ear disorder [Unknown]
  - Swelling [Unknown]
  - Dizziness [Unknown]
  - Feeling of body temperature change [Recovered/Resolved]
  - Hypotension [Unknown]
  - Confusional state [Recovered/Resolved]
  - Anger [Recovered/Resolved]
  - Hypertension [Unknown]
  - Somnolence [Unknown]
  - Drug ineffective [Recovered/Resolved]
  - Condition aggravated [Recovered/Resolved]
  - Suicidal ideation [Recovered/Resolved]
  - Haemorrhage [Unknown]
  - Visual impairment [Recovered/Resolved]
  - Anaemia [Unknown]
  - Dehydration [Unknown]
  - Heart rate decreased [Unknown]
  - Asthenia [Unknown]
  - Pain [Recovered/Resolved]
  - Hypoacusis [Recovered/Resolved]
  - Irritability [Recovered/Resolved]
  - Pharyngeal oedema [Unknown]
  - Wheelchair user [Unknown]
  - Fibromyalgia [Unknown]

NARRATIVE: CASE EVENT DATE: 2018
